FAERS Safety Report 4565076-X (Version None)
Quarter: 2005Q1

REPORT INFORMATION
  Report Type: 
  Country: None (occurrence: None)
  Receive Date: 20050131
  Receipt Date: 20050119
  Transmission Date: 20050727
  Serious: Yes (Hospitalization)
  Sender: FDA-Public Use
  Company Number: GB-BRISTOL-MYERS SQUIBB COMPANY-12828836

PATIENT
  Age: 70 Year
  Sex: Male

DRUGS (9)
  1. WARFARIN [Suspect]
     Indication: ATRIAL FIBRILLATION
     Dosage: DOSE: AS PER INR
     Route: 048
     Dates: end: 20050108
  2. ASPIRIN [Suspect]
     Indication: MYOCARDIAL INFARCTION
     Route: 048
     Dates: end: 20050108
  3. ARCOXIA [Suspect]
     Route: 048
     Dates: start: 20040601, end: 20050108
  4. ATENOLOL [Concomitant]
     Indication: MYOCARDIAL INFARCTION
     Route: 048
  5. FUROSEMIDE [Concomitant]
     Indication: CORONARY ARTERY SURGERY
     Route: 048
  6. IMDUR [Concomitant]
     Indication: PAIN
     Route: 048
  7. ENALAPRIL MALEATE [Concomitant]
     Indication: MYOCARDIAL INFARCTION
     Route: 048
  8. DIGOXIN [Concomitant]
     Indication: ATRIAL FIBRILLATION
     Route: 048
  9. SIMVASTATIN [Concomitant]
     Indication: BLOOD CHOLESTEROL INCREASED
     Route: 048

REACTIONS (3)
  - GASTROINTESTINAL HAEMORRHAGE [None]
  - OESOPHAGITIS [None]
  - ULCER [None]
